FAERS Safety Report 5932989-3 (Version None)
Quarter: 2008Q4

REPORT INFORMATION
  Report Type: 
  Country: None (occurrence: None)
  Receive Date: 20081027
  Receipt Date: 20081027
  Transmission Date: 20090506
  Serious: Yes (Hospitalization, Other)
  Sender: FDA-Public Use
  Company Number: None

PATIENT
  Age: 45 Year
  Sex: Male
  Weight: 99.7913 kg

DRUGS (3)
  1. PROVIGIL [Suspect]
     Indication: BEHCET'S SYNDROME
     Dosage: 200-MG DAILY PO
     Route: 048
     Dates: start: 20060420, end: 20070913
  2. PROVIGIL [Suspect]
     Indication: FATIGUE
     Dosage: 200-MG DAILY PO
     Route: 048
     Dates: start: 20060420, end: 20070913
  3. PROVIGIL [Suspect]
     Indication: NARCOLEPSY
     Dosage: 200-MG DAILY PO
     Route: 048
     Dates: start: 20060420, end: 20070913

REACTIONS (2)
  - JUDGEMENT IMPAIRED [None]
  - RAPID EYE MOVEMENTS SLEEP ABNORMAL [None]
